FAERS Safety Report 17493824 (Version 1)
Quarter: 2020Q1

REPORT INFORMATION
  Report Type: Other
  Country: DE (occurrence: DE)
  Receive Date: 20200304
  Receipt Date: 20200304
  Transmission Date: 20200409
  Serious: Yes (Disabling)
  Sender: FDA-Public Use
  Company Number: DE-MACLEODS PHARMACEUTICALS US LTD-MAC2020025424

PATIENT

DRUGS (5)
  1. NALOXONE HYDROCHLORIDE, OXYCODONE HYDROCHLORIDE [Concomitant]
     Active Substance: NALOXONE HYDROCHLORIDE\OXYCODONE HYDROCHLORIDE
     Indication: POSTOPERATIVE ANALGESIA
     Dosage: 2 DOSAGE FORM, QD, DAILY DOSE: 2 DF DOSAGE FORM EVERY DAYS 2 SEPARATED DOSES
     Route: 048
     Dates: start: 20190718, end: 20190831
  2. CALCIUM VERLA [Concomitant]
     Indication: OSTEOPENIA
     Dosage: 1200 MILLIGRAM, QD, DAILY DOSE: 1200 MG MILLGRAM(S) EVERY DAYS 2 SEPARATED DOSES
     Route: 048
     Dates: start: 20190809
  3. LEVOFLOXACIN TABLET [Suspect]
     Active Substance: LEVOFLOXACIN
     Indication: SPONDYLITIS
     Dosage: 1000 MILLIGRAM, QD, DAILY DOSE: 1000 MG MILLGRAM(S) EVERY DAYS 2 SEPARATED DOSES
     Route: 048
     Dates: start: 20190805, end: 20190910
  4. VITAMIN B12 ANCHORMAN [Concomitant]
     Indication: VITAMIN D DEFICIENCY
     Dosage: 3000 INTERNATIONAL UNIT, Q.W., DAILY DOSE: 3000 IU INTERNATIONAL UNIT(S) EVERY WEEKS 3 SEPARATED DOS
     Route: 048
  5. DEKRISTOL [Concomitant]
     Active Substance: CHOLECALCIFEROL
     Indication: VITAMIN D DEFICIENCY
     Dosage: ELEVATED 20000 INTERNATIONAL UNIT, Q.W., DAILY DOSE: 20000 IU INTERNATIONAL UNIT(S) EVERY WEEKS
     Route: 048
     Dates: start: 20190809

REACTIONS (5)
  - Arthritis [Not Recovered/Not Resolved]
  - Muscle spasms [Not Recovered/Not Resolved]
  - Gait disturbance [Not Recovered/Not Resolved]
  - Osteoarthritis [Not Recovered/Not Resolved]
  - Myalgia [Not Recovered/Not Resolved]

NARRATIVE: CASE EVENT DATE: 2019
